FAERS Safety Report 9805639 (Version 1)
Quarter: 2014Q1

REPORT INFORMATION
  Report Type: Spontaneous
  Country: US (occurrence: None)
  Receive Date: 20140107
  Receipt Date: 20140107
  Transmission Date: 20141002
  Serious: Yes (Death, Other)
  Sender: FDA-Public Use
  Company Number: USW201312-000165

PATIENT
  Age: 81 Year
  Sex: Male

DRUGS (1)
  1. APOKYN [Suspect]
     Indication: PARKINSON^S DISEASE
     Dosage: 2-3 TIMES A DAY
     Dates: start: 20130227, end: 201309

REACTIONS (5)
  - Asthenia [None]
  - Hypotension [None]
  - Cardiomyopathy [None]
  - Aphagia [None]
  - Activities of daily living impaired [None]
